FAERS Safety Report 24189105 (Version 1)
Quarter: 2024Q3

REPORT INFORMATION
  Report Type: Spontaneous
  Country: US (occurrence: US)
  Receive Date: 20240808
  Receipt Date: 20240808
  Transmission Date: 20241017
  Serious: No
  Sender: OTSUKA
  Company Number: US-OTSUKA-2024_017022

PATIENT
  Age: 25 Year
  Sex: Male

DRUGS (4)
  1. ABILIFY [Suspect]
     Active Substance: ARIPIPRAZOLE
     Indication: Schizophrenia
     Dosage: 5 MG
     Route: 048
  2. ABILIFY MAINTENA [Suspect]
     Active Substance: ARIPIPRAZOLE
     Indication: Schizophrenia
     Dosage: UNK
     Route: 065
  3. TRINTELLIX [Suspect]
     Active Substance: VORTIOXETINE HYDROBROMIDE
     Indication: Product used for unknown indication
     Dosage: UNK
     Route: 065
  4. TRILAFON [Suspect]
     Active Substance: PERPHENAZINE
     Indication: Product used for unknown indication
     Dosage: UNK UNK, BID (A COUPLE OF TIMES A DAY)
     Route: 065

REACTIONS (3)
  - Weight increased [Unknown]
  - Underdose [Unknown]
  - Treatment noncompliance [Unknown]
